FAERS Safety Report 6143208-X (Version None)
Quarter: 2009Q2

REPORT INFORMATION
  Report Type: 
  Country: None (occurrence: None)
  Receive Date: 20090403
  Receipt Date: 20090324
  Transmission Date: 20091009
  Serious: Yes (Other)
  Sender: FDA-Public Use
  Company Number: CA-PFIZER INC-2009165995

PATIENT

DRUGS (2)
  1. ZELDOX [Suspect]
     Dosage: 40 MG, UNK
     Route: 048
     Dates: start: 20090121
  2. CIPRALEX [Concomitant]
     Dosage: 20 MG, UNK

REACTIONS (2)
  - PANIC ATTACK [None]
  - SUICIDAL IDEATION [None]
